FAERS Safety Report 5704252-7 (Version None)
Quarter: 2008Q2

REPORT INFORMATION
  Report Type: 
  Country: None (occurrence: None)
  Receive Date: 20080414
  Receipt Date: 20080222
  Transmission Date: 20081010
  Serious: No
  Sender: FDA-Public Use
  Company Number: US-BAYER-200815556NA

PATIENT
  Age: 44 Year
  Sex: Female
  Weight: 78 kg

DRUGS (3)
  1. ULTRAVIST 370 [Suspect]
     Indication: COMPUTERISED TOMOGRAM ABDOMEN
     Route: 042
     Dates: start: 20080222, end: 20080222
  2. PREMARIN [Concomitant]
     Route: 065
  3. READI-CAT 2 [Concomitant]
     Indication: COMPUTERISED TOMOGRAM ABDOMEN

REACTIONS (1)
  - PRURITUS [None]
